FAERS Safety Report 19416484 (Version 2)
Quarter: 2022Q2

REPORT INFORMATION
  Report Type: Spontaneous
  Country: US (occurrence: US)
  Receive Date: 20210614
  Receipt Date: 20220407
  Transmission Date: 20220721
  Serious: Yes (Other)
  Sender: FDA-Public Use
  Company Number: US-PFIZER INC-2020176424

PATIENT
  Age: 60 Year
  Sex: Male

DRUGS (36)
  1. PREVACID [Suspect]
     Active Substance: LANSOPRAZOLE
     Indication: Gastric disorder
     Dosage: UNK
     Dates: start: 201104, end: 201702
  2. PREVACID [Suspect]
     Active Substance: LANSOPRAZOLE
     Indication: Gastrooesophageal reflux disease
     Dosage: 15 MG
     Dates: start: 2016, end: 2019
  3. PREVACID [Suspect]
     Active Substance: LANSOPRAZOLE
     Dosage: UNK
     Route: 042
     Dates: start: 201104, end: 201702
  4. PROTONIX [Suspect]
     Active Substance: PANTOPRAZOLE SODIUM
     Indication: Gastric disorder
     Dosage: 40 MG
     Dates: start: 2011
  5. PROTONIX [Suspect]
     Active Substance: PANTOPRAZOLE SODIUM
     Indication: Gastrooesophageal reflux disease
  6. NEXIUM [Suspect]
     Active Substance: ESOMEPRAZOLE MAGNESIUM
     Indication: Gastric disorder
     Dosage: UNK
     Dates: start: 201104, end: 201702
  7. NEXIUM [Suspect]
     Active Substance: ESOMEPRAZOLE MAGNESIUM
     Indication: Gastrooesophageal reflux disease
     Dosage: 50 MG
     Dates: start: 2012
  8. NEXIUM I.V. [Suspect]
     Active Substance: ESOMEPRAZOLE SODIUM
     Dosage: UNK
     Route: 042
     Dates: start: 201104, end: 201702
  9. NEXIUM 24HR [Suspect]
     Active Substance: ESOMEPRAZOLE MAGNESIUM
     Indication: Gastrooesophageal reflux disease
     Dosage: UNK
     Dates: start: 201104, end: 201702
  10. PREVACID 24 HR [Suspect]
     Active Substance: LANSOPRAZOLE
     Indication: Gastrooesophageal reflux disease
     Dosage: UNK
     Dates: start: 201104, end: 201702
  11. PRILOSEC [Suspect]
     Active Substance: OMEPRAZOLE MAGNESIUM
     Indication: Gastric disorder
     Dosage: UNK
     Dates: start: 201104, end: 201702
  12. PRILOSEC [Suspect]
     Active Substance: OMEPRAZOLE MAGNESIUM
     Indication: Gastrooesophageal reflux disease
     Dosage: 20 MG
     Dates: start: 2004, end: 2017
  13. PRILOSEC OTC [Suspect]
     Active Substance: OMEPRAZOLE MAGNESIUM
     Indication: Gastrooesophageal reflux disease
     Dosage: UNK
     Dates: start: 201104, end: 201702
  14. OMEPRAZOLE [Suspect]
     Active Substance: OMEPRAZOLE
     Indication: Gastric disorder
     Dosage: 20 MG
     Dates: start: 2011, end: 2019
  15. OMEPRAZOLE [Suspect]
     Active Substance: OMEPRAZOLE
     Indication: Gastrooesophageal reflux disease
  16. PANTOPRAZOLE [Suspect]
     Active Substance: PANTOPRAZOLE
     Indication: Gastric disorder
     Dosage: 40 MG
     Dates: start: 2015, end: 2021
  17. PANTOPRAZOLE [Suspect]
     Active Substance: PANTOPRAZOLE
     Indication: Gastrooesophageal reflux disease
  18. FENOPROFEN [Concomitant]
     Active Substance: FENOPROFEN
     Indication: Prostatomegaly
     Dosage: UNK
     Dates: start: 2020
  19. CELEBREX [Concomitant]
     Active Substance: CELECOXIB
     Indication: Gastric disorder
     Dosage: UNK
     Dates: start: 2016
  20. NAPROSYN [Concomitant]
     Active Substance: NAPROXEN
     Indication: Gastric disorder
     Dosage: UNK
     Dates: start: 2019
  21. CIPRO [Concomitant]
     Active Substance: CIPROFLOXACIN HYDROCHLORIDE
     Indication: Localised infection
     Dosage: UNK
     Dates: start: 2021
  22. XARELTO [Concomitant]
     Active Substance: RIVAROXABAN
     Indication: Thrombosis
     Dosage: UNK
     Dates: start: 2020
  23. LEXAPRO [Concomitant]
     Active Substance: ESCITALOPRAM OXALATE
     Indication: Anxiety
     Dosage: UNK
     Dates: start: 2019
  24. LASIX [Concomitant]
     Active Substance: FUROSEMIDE
     Indication: Weight abnormal
     Dosage: UNK
     Dates: start: 2016
  25. SINGULAIR [Concomitant]
     Active Substance: MONTELUKAST SODIUM
     Indication: Lung disorder
     Dosage: UNK
     Dates: start: 2021
  26. LEVOTHYROXINE [Concomitant]
     Active Substance: LEVOTHYROXINE
     Indication: Thyroid disorder
     Dosage: UNK
     Dates: start: 2019
  27. SIMVASTATIN [Concomitant]
     Active Substance: SIMVASTATIN
     Indication: Gastric disorder
     Dosage: UNK
     Dates: start: 2018
  28. TYLENOL [Concomitant]
     Active Substance: ACETAMINOPHEN
     Indication: Back pain
     Dosage: UNK
     Dates: start: 2019
  29. MORPHINE [Concomitant]
     Active Substance: MORPHINE
     Indication: Back pain
     Dosage: UNK
     Dates: start: 2019, end: 2021
  30. PEPCID [Concomitant]
     Active Substance: FAMOTIDINE
     Dosage: UNK
     Dates: start: 2015, end: 2016
  31. PEPCID AC [Concomitant]
     Active Substance: FAMOTIDINE
     Dosage: UNK
     Dates: start: 2017, end: 2019
  32. PEPCID COMPLETE OTC [Concomitant]
     Dosage: UNK
     Dates: start: 2010, end: 2013
  33. ZANTAC 150 (RANITIDINE HYDROCHLORIDE) [Concomitant]
     Active Substance: RANITIDINE HYDROCHLORIDE
     Dosage: UNK
     Dates: start: 2013, end: 2014
  34. ZANTAC [Concomitant]
     Active Substance: RANITIDINE HYDROCHLORIDE
     Dosage: UNK
     Dates: start: 2010
  35. ROLAIDS [CALCIUM CARBONATE;MAGNESIUM HYDROXIDE] [Concomitant]
     Indication: Antacid therapy
     Dosage: UNK
     Dates: start: 2008, end: 2010
  36. CALCIUM CARBONATE\MAGNESIUM CARBONATE\MAGNESIUM TRISILICATE [Concomitant]
     Active Substance: CALCIUM CARBONATE\MAGNESIUM CARBONATE\MAGNESIUM TRISILICATE
     Indication: Antacid therapy
     Dosage: UNK
     Dates: start: 2008, end: 2010

REACTIONS (9)
  - Acute kidney injury [Not Recovered/Not Resolved]
  - Chronic kidney disease [Not Recovered/Not Resolved]
  - Renal failure [Not Recovered/Not Resolved]
  - Renal cancer [Not Recovered/Not Resolved]
  - Renal impairment [Unknown]
  - Gait disturbance [Unknown]
  - Condition aggravated [Unknown]
  - Confusional state [Unknown]
  - Amnesia [Unknown]

NARRATIVE: CASE EVENT DATE: 20110418
